FAERS Safety Report 6031070-5 (Version None)
Quarter: 2008Q4

REPORT INFORMATION
  Report Type: 
  Country: None (occurrence: None)
  Receive Date: 20081222
  Receipt Date: 20081117
  Transmission Date: 20090506
  Serious: No
  Sender: FDA-Public Use
  Company Number: US-WYE-H06871108

PATIENT
  Age: 50 Year
  Sex: Female
  Weight: 57.66 kg

DRUGS (4)
  1. PRISTIQ [Suspect]
     Indication: PAIN
     Dosage: 50 MG 1X PER 1 DAY, ORAL
     Route: 048
     Dates: start: 20081013
  2. TOPAMAX [Suspect]
     Indication: PAIN
     Dosage: 75 MG 1X PER 1 DAY
     Dates: start: 20070101
  3. AMITRIPTYLINE HYDROCHLORIDE [Concomitant]
  4. CYMBALTA [Concomitant]

REACTIONS (2)
  - DRUG INTERACTION [None]
  - URINARY INCONTINENCE [None]
